FAERS Safety Report 5619545-1 (Version None)
Quarter: 2008Q1

REPORT INFORMATION
  Report Type: 
  Country: None (occurrence: None)
  Receive Date: 20080205
  Receipt Date: 20080205
  Transmission Date: 20080703
  Serious: Yes (Life-Threatening)
  Sender: FDA-Public Use
  Company Number: None

PATIENT
  Age: 52 Year
  Sex: Female
  Weight: 61.2356 kg

DRUGS (2)
  1. CREST REGULAR TOOTHPASTE, PROCTOR + GAMBLE [Suspect]
     Dates: start: 20080130
  2. CREST REGULAR TOOTHPASTE (1ST INCIDENT) [Suspect]

REACTIONS (2)
  - ASTHMA [None]
  - BURNING SENSATION [None]
